FAERS Safety Report 9976524 (Version 1)
Quarter: 2014Q1

REPORT INFORMATION
  Report Type: Report from Study
  Country: US (occurrence: US)
  Receive Date: 20140306
  Receipt Date: 20140306
  Transmission Date: 20141002
  Serious: No
  Sender: FDA-Public Use
  Company Number: US-ABBVIE-13P-163-1166641-00

PATIENT
  Sex: Female

DRUGS (12)
  1. HUMIRA [Suspect]
     Indication: COLITIS MICROSCOPIC
  2. HUMIRA [Suspect]
     Indication: CROHN^S DISEASE
  3. HUMIRA [Suspect]
     Indication: PRODUCT USED FOR UNKNOWN INDICATION
     Dates: start: 20110811
  4. BACLOFEN [Concomitant]
     Indication: MUSCLE RELAXANT THERAPY
  5. CELEXA [Concomitant]
     Indication: DEPRESSION
  6. CELEBREX [Concomitant]
     Indication: ARTHRITIS
  7. ZOCOR [Concomitant]
     Indication: BLOOD CHOLESTEROL
  8. NEURONTIN [Concomitant]
     Indication: NEUROPATHY PERIPHERAL
  9. OXYCODONE [Concomitant]
     Indication: SPINAL PAIN
     Dosage: TWO-THREE TIMES DAILY
  10. OXYCODONE [Concomitant]
     Indication: NECK PAIN
  11. OVER THE COUNTER ALLERGIC MEDICATION [Concomitant]
     Indication: SEASONAL ALLERGY
  12. ANTIBIOTIC [Concomitant]
     Indication: PRODUCT USED FOR UNKNOWN INDICATION

REACTIONS (4)
  - Fall [Not Recovered/Not Resolved]
  - Fall [Not Recovered/Not Resolved]
  - Nasopharyngitis [Recovered/Resolved]
  - Back pain [Not Recovered/Not Resolved]
